FAERS Safety Report 4460179-2 (Version None)
Quarter: 2004Q3

REPORT INFORMATION
  Report Type: 
  Country: None (occurrence: None)
  Receive Date: 20040928
  Receipt Date: 20040116
  Transmission Date: 20050211
  Serious: No
  Sender: FDA-Public Use
  Company Number: US-GLAXOSMITHKLINE-A0493794A

PATIENT
  Age: 70 Year
  Sex: Female
  Weight: 66.8 kg

DRUGS (11)
  1. SEREVENT [Suspect]
     Indication: ILL-DEFINED DISORDER
     Dosage: 2PUFF TWICE PER DAY
     Route: 055
  2. HYDROCHLOROTHIAZIDE [Concomitant]
     Dosage: 25MG PER DAY
     Route: 065
     Dates: start: 20020401
  3. NORGESIC FORTE [Concomitant]
     Dates: start: 20020429
  4. MIACALCIN [Concomitant]
     Dates: start: 20021230
  5. SINGULAIR [Concomitant]
     Dosage: 10MG PER DAY
     Route: 065
  6. BUSPAR [Concomitant]
     Dosage: 10MG PER DAY
     Route: 065
     Dates: start: 20020501
  7. CALAN [Concomitant]
     Dosage: 120MG PER DAY
     Route: 065
     Dates: start: 20020610
  8. ASPIRIN [Concomitant]
  9. ATIVAN [Concomitant]
     Dosage: .5MG AS REQUIRED
     Route: 065
     Dates: start: 20020601
  10. CLARINEX [Concomitant]
     Dosage: 5MG PER DAY
     Route: 065
     Dates: start: 20021008
  11. PROVENTIL [Concomitant]
     Dosage: 2PUFF AS REQUIRED
     Route: 055

REACTIONS (2)
  - BLOOD PRESSURE INCREASED [None]
  - PALPITATIONS [None]
